FAERS Safety Report 10173601 (Version 1)
Quarter: 2014Q2

REPORT INFORMATION
  Report Type: Spontaneous
  Country: US (occurrence: None)
  Receive Date: 20140514
  Receipt Date: 20140514
  Transmission Date: 20141212
  Serious: Yes (Other)
  Sender: FDA-Public Use
  Company Number: None

PATIENT
  Age: 2 Year
  Sex: Male
  Weight: 9.07 kg

DRUGS (1)
  1. TRIAMCINOLONE ACETONIDE [Suspect]
     Indication: ECZEMA
     Dosage: APPLY HANDFUL OF AFFECTED AREA TWICE DAILY, APPLIED TO A SURFACE USUALLY THE SKIN
     Dates: start: 20120828, end: 20130624

REACTIONS (2)
  - Secondary adrenocortical insufficiency [None]
  - Eczema [None]
